FAERS Safety Report 23238882 (Version 1)
Quarter: 2023Q4

REPORT INFORMATION
  Report Type: Spontaneous
  Country: US (occurrence: US)
  Receive Date: 20231129
  Receipt Date: 20231129
  Transmission Date: 20240109
  Serious: Yes (Disabling)
  Sender: FDA-Public Use
  Company Number: US-SANDOZ-SDZ2023US060540

PATIENT
  Age: 62 Year
  Sex: Female
  Weight: 55.329 kg

DRUGS (1)
  1. VIVELLE-DOT [Suspect]
     Active Substance: ESTRADIOL
     Indication: Product used for unknown indication
     Dosage: 0.03 %, QW2 (PATCH CHANGED TWICE A WEEK)
     Route: 062
     Dates: start: 20230915

REACTIONS (3)
  - Night sweats [Recovering/Resolving]
  - Blood oestrogen decreased [Recovering/Resolving]
  - Hot flush [Unknown]

NARRATIVE: CASE EVENT DATE: 20231015
